FAERS Safety Report 16438013 (Version 18)
Quarter: 2022Q2

REPORT INFORMATION
  Report Type: Other
  Country: DE (occurrence: DE)
  Receive Date: 20190617
  Receipt Date: 20220523
  Transmission Date: 20220721
  Serious: Yes (Other)
  Sender: FDA-Public Use
  Company Number: DE-ROCHE-2305869

PATIENT
  Age: 67 Year
  Sex: Male

DRUGS (10)
  1. OCREVUS [Suspect]
     Active Substance: OCRELIZUMAB
     Indication: Secondary progressive multiple sclerosis
     Dosage: THE OCRELIZUMAB MAINTENANCE DOSE WAS ADMINISTERED ON 29/MAY/2020 AS PLANNED.
     Route: 042
     Dates: start: 20190401, end: 20190401
  2. OCREVUS [Suspect]
     Active Substance: OCRELIZUMAB
     Route: 042
     Dates: start: 20190415, end: 20190415
  3. OCREVUS [Suspect]
     Active Substance: OCRELIZUMAB
     Route: 042
     Dates: start: 20191014
  4. OCREVUS [Suspect]
     Active Substance: OCRELIZUMAB
     Route: 042
     Dates: start: 20200529
  5. OCREVUS [Suspect]
     Active Substance: OCRELIZUMAB
     Route: 042
     Dates: start: 20201110
  6. OCREVUS [Suspect]
     Active Substance: OCRELIZUMAB
     Route: 042
     Dates: start: 20210714
  7. COMIRNATY [Suspect]
     Active Substance: TOZINAMERAN
     Indication: COVID-19 immunisation
     Dosage: FIRST VACCINATION
     Route: 065
     Dates: start: 20210422
  8. COMIRNATY [Suspect]
     Active Substance: TOZINAMERAN
     Dosage: SECOND DOSE
     Route: 065
     Dates: start: 20210513
  9. CORTISONE ACETATE [Suspect]
     Active Substance: CORTISONE ACETATE
     Indication: Premedication
     Route: 065
  10. DALFAMPRIDINE [Concomitant]
     Active Substance: DALFAMPRIDINE
     Dates: start: 202104

REACTIONS (27)
  - Chills [Recovered/Resolved]
  - Musculoskeletal stiffness [Recovered/Resolved]
  - Dizziness [Not Recovered/Not Resolved]
  - Skin laceration [Recovered/Resolved]
  - Pancreatic disorder [Recovered/Resolved]
  - Fall [Unknown]
  - Aggression [Recovered/Resolved]
  - Influenza [Recovered/Resolved]
  - Cognitive disorder [Not Recovered/Not Resolved]
  - Contusion [Recovered/Resolved]
  - Asthenia [Not Recovered/Not Resolved]
  - Eye pruritus [Unknown]
  - Skin reaction [Unknown]
  - Fatigue [Recovered/Resolved]
  - Fatigue [Recovered/Resolved]
  - Pruritus [Unknown]
  - Loss of consciousness [Recovered/Resolved]
  - Skin discolouration [Recovered/Resolved]
  - Nasopharyngitis [Recovered/Resolved]
  - Off label use [Unknown]
  - Feeling cold [Recovered/Resolved]
  - Flushing [Recovered/Resolved]
  - Bone contusion [Recovered/Resolved]
  - Joint swelling [Unknown]
  - Periorbital haematoma [Unknown]
  - Skin abrasion [Unknown]
  - Tremor [Unknown]

NARRATIVE: CASE EVENT DATE: 20190402
